FAERS Safety Report 25166479 (Version 1)
Quarter: 2025Q2

REPORT INFORMATION
  Report Type: Spontaneous
  Country: US (occurrence: US)
  Receive Date: 20250407
  Receipt Date: 20250407
  Transmission Date: 20250716
  Serious: Yes (Other)
  Sender: CATALYST PHARMA
  Company Number: US-CATALYST PHARMACEUTICALS-US-CATA-25-00468

PATIENT
  Age: 8 Year
  Sex: Male
  Weight: 23.583 kg

DRUGS (6)
  1. AGAMREE [Suspect]
     Active Substance: VAMOROLONE
     Indication: Duchenne muscular dystrophy
     Dosage: 2.8 ML DAILY
     Route: 048
     Dates: start: 20240906, end: 20241212
  2. AGAMREE [Suspect]
     Active Substance: VAMOROLONE
     Dosage: 3.1 ML DAILY
     Route: 048
     Dates: start: 20241212
  3. AGAMREE [Suspect]
     Active Substance: VAMOROLONE
     Dosage: 3.4 ML ONCE DAILY
     Route: 048
  4. CHILDREN^S MULTIVITAMIN [Concomitant]
     Indication: Hypovitaminosis
     Dosage: 1 TABLET DAILY
     Route: 065
  5. SELENIUM [Concomitant]
     Active Substance: SELENIUM
     Indication: Hypovitaminosis
     Dosage: 50 MCG DAILY
     Route: 065
  6. TYLENOL [Concomitant]
     Active Substance: ACETAMINOPHEN
     Indication: Pain
     Route: 065

REACTIONS (1)
  - Ventricular hypokinesia [Not Recovered/Not Resolved]

NARRATIVE: CASE EVENT DATE: 20250326
